FAERS Safety Report 9824727 (Version 2)
Quarter: 2014Q1

REPORT INFORMATION
  Report Type: Report from Study
  Country: US (occurrence: US)
  Receive Date: 20140117
  Receipt Date: 20140117
  Transmission Date: 20141002
  Serious: Yes (Other)
  Sender: FDA-Public Use
  Company Number: US-ROCHE-1284341

PATIENT
  Age: 84 Year
  Sex: Female
  Weight: 82.63 kg

DRUGS (1)
  1. XELODA [Suspect]
     Indication: COLON CANCER STAGE III
     Route: 048
     Dates: start: 20130916, end: 20131123

REACTIONS (4)
  - Erythema [Not Recovered/Not Resolved]
  - Local swelling [Not Recovered/Not Resolved]
  - Fracture pain [Not Recovered/Not Resolved]
  - Road traffic accident [Recovering/Resolving]
